FAERS Safety Report 19661211 (Version 2)
Quarter: 2022Q4

REPORT INFORMATION
  Report Type: Spontaneous
  Country: CH (occurrence: CH)
  Receive Date: 20210805
  Receipt Date: 20221031
  Transmission Date: 20230113
  Serious: Yes (Hospitalization, Other)
  Sender: FDA-Public Use
  Company Number: None

PATIENT
  Sex: Female

DRUGS (29)
  1. ATORVASTATIN [Suspect]
     Active Substance: ATORVASTATIN
     Indication: Prophylaxis
     Dosage: 20 MG, 1X/DAY (1 TABLET IN THE EVENING)
     Route: 065
     Dates: start: 2014, end: 20210802
  2. ATORVASTATIN [Suspect]
     Active Substance: ATORVASTATIN
     Dosage: 20 MG, 1X/DAY (1 TABLET IN THE EVENING)
     Route: 065
     Dates: start: 20210804
  3. AMLODIPINE BESYLATE\HYDROCHLOROTHIAZIDE\OLMESARTAN MEDOXOMIL [Suspect]
     Active Substance: AMLODIPINE BESYLATE\HYDROCHLOROTHIAZIDE\OLMESARTAN MEDOXOMIL
     Indication: Hypertension
     Dosage: 1 DF, 1X/DAY (40/10/12.5 MILLIGRAM), START 31-MAY-2021
     Route: 065
     Dates: end: 20210701
  4. ESOMEPRAZOLE [Suspect]
     Active Substance: ESOMEPRAZOLE
     Indication: Product used for unknown indication
     Dosage: 40 MG, 1X/DAY (1 TAB IN THE MORNING)
     Route: 065
     Dates: end: 20210511
  5. METOPROLOL SUCCINATE [Suspect]
     Active Substance: METOPROLOL SUCCINATE
     Indication: Hypertension
     Dosage: 100 MILLIGRAM, QD (1X/DAY)
     Route: 065
  6. DAFALGAN [Suspect]
     Active Substance: ACETAMINOPHEN
     Indication: Pain
     Dosage: 1 G, 3X/DAY, START 30-MAY-2021
     Route: 065
  7. DAFALGAN [Suspect]
     Active Substance: ACETAMINOPHEN
     Dosage: AS NEEDED, START 30-MAY-2021
     Route: 065
  8. ASPIRIN [Suspect]
     Active Substance: ASPIRIN
     Indication: Prophylaxis
     Dosage: 100 MG, 1X/DAY (1 TABLET IN THE MORNING)
     Route: 065
     Dates: start: 2014
  9. CALCIUM\CHOLECALCIFEROL [Suspect]
     Active Substance: CALCIUM\CHOLECALCIFEROL
     Indication: Osteoporosis
     Dosage: 1 DF, 1X/DAY (1 TABLET AT NOON)
     Route: 065
     Dates: start: 2017
  10. CIPRALEX [Suspect]
     Active Substance: ESCITALOPRAM OXALATE
     Indication: Depression
     Dosage: 10 MG, 1X/DAY (1 TABLET IN THE MORNING)
     Route: 065
     Dates: start: 2014, end: 20210802
  11. CIPRALEX [Suspect]
     Active Substance: ESCITALOPRAM OXALATE
     Dosage: 10 MG, 1X/DAY (1 TABLET IN THE MORNING)
     Route: 065
     Dates: start: 20210804
  12. ESOMEPRAZOLE [Suspect]
     Active Substance: ESOMEPRAZOLE
     Indication: Product used for unknown indication
     Dosage: 40 MILLIGRAM, QD
     Route: 065
     Dates: end: 20210611
  13. ESOMEPRAZOLE [Suspect]
     Active Substance: ESOMEPRAZOLE
     Dosage: 40 MILLIGRAM, QD, START 11-AUG-2021
     Route: 065
  14. AMLODIPINE BESYLATE\OLMESARTAN MEDOXOMIL [Suspect]
     Active Substance: AMLODIPINE BESYLATE\OLMESARTAN MEDOXOMIL
     Indication: Hypertension
     Dosage: UNK, START 02-JUL-2021
     Route: 065
     Dates: end: 20210802
  15. AMLODIPINE [Suspect]
     Active Substance: AMLODIPINE BESYLATE
     Indication: Hypertension
     Dosage: UNK, START 10-AUG-2021
     Route: 065
  16. FIG FRUIT OIL\SORBITOL [Suspect]
     Active Substance: FIG FRUIT OIL\SORBITOL
     Indication: Product used for unknown indication
     Dosage: 15 ML, AS NEEDED, START 03-JUN-2021
     Route: 065
  17. IRON POLYMALTOSE [Suspect]
     Active Substance: IRON POLYMALTOSE
     Indication: Iron deficiency
     Dosage: 100 MG, 1X/DAY, START 01-JUN-2021
     Route: 065
     Dates: end: 20210610
  18. GINKGO [Concomitant]
     Active Substance: GINKGO
     Indication: Product used for unknown indication
     Dosage: UNK
     Route: 065
     Dates: end: 20210529
  19. COSOPT [Concomitant]
     Active Substance: DORZOLAMIDE HYDROCHLORIDE\TIMOLOL MALEATE
     Indication: Glaucoma
     Dosage: UNK
     Route: 065
  20. RHEUMON [Concomitant]
     Indication: Back pain
     Dosage: UNK
     Route: 065
     Dates: end: 20210529
  21. FUROSEMIDE [Concomitant]
     Active Substance: FUROSEMIDE
     Indication: Cardiac failure
     Dosage: UNK, START 30-MAY-2021
     Route: 065
     Dates: end: 20210530
  22. ENOXAPARIN SODIUM [Concomitant]
     Active Substance: ENOXAPARIN SODIUM
     Indication: Prophylaxis
     Dosage: UNK, START 30-MAY-2021
     Route: 065
  23. FOLIC ACID [Concomitant]
     Active Substance: FOLIC ACID
     Indication: Folate deficiency
     Dosage: UNK, START 07-JUN-2021
     Route: 065
  24. CIPROFLOXACIN [Concomitant]
     Active Substance: CIPROFLOXACIN
     Indication: Urinary tract infection
     Dosage: UNK, START 10-JUN-2021
     Route: 065
     Dates: end: 20210617
  25. OXYCODONE HYDROCHLORIDE [Concomitant]
     Active Substance: OXYCODONE HYDROCHLORIDE
     Indication: Back pain
     Dosage: UNK, START 08-JUN-2021
     Route: 065
  26. VITAMIN B12 [Concomitant]
     Active Substance: CYANOCOBALAMIN
     Indication: Vitamin B12 deficiency
     Dosage: UNK, START 07-JUN-2021
     Route: 065
  27. FORTALIS BALSAM [Concomitant]
     Indication: Back pain
     Dosage: UNK, START 07-JUN-2021
     Route: 065
  28. METAMUCIL [Concomitant]
     Active Substance: PLANTAGO SEED
     Indication: Product used for unknown indication
     Dosage: AS NEEDED (IN PROGRESS IF NO BOWEL MOVEMENT FOR 1 DAY), START 07-JUN-2021
     Route: 065
     Dates: end: 20210609
  29. MORPHINE [Concomitant]
     Active Substance: MORPHINE
     Indication: Back pain
     Dosage: UNK, START 31-MAY-2021
     Route: 065
     Dates: end: 20210608

REACTIONS (6)
  - Cardiac failure [Unknown]
  - Diverticulum intestinal [Unknown]
  - Occult blood positive [Unknown]
  - Diarrhoea [Recovered/Resolved]
  - Pyrexia [Unknown]
  - Back pain [Unknown]

NARRATIVE: CASE EVENT DATE: 20200501
